FAERS Safety Report 16449898 (Version 1)
Quarter: 2019Q2

REPORT INFORMATION
  Report Type: Spontaneous
  Country: US (occurrence: US)
  Receive Date: 20190509
  Receipt Date: 20190509
  Transmission Date: 20190711
  Serious: No
  Sender: FDA-Public Use
  Company Number: None

PATIENT
  Age: 73 Year
  Sex: Female

DRUGS (8)
  1. EFFEXOR [Concomitant]
     Active Substance: VENLAFAXINE HYDROCHLORIDE
  2. MAGNESIUM [Concomitant]
     Active Substance: MAGNESIUM
  3. CAPECITABINE 500MG [Suspect]
     Active Substance: CAPECITABINE
     Indication: BREAST CANCER FEMALE
     Route: 048
  4. POTASSIUM [Concomitant]
     Active Substance: POTASSIUM
  5. PROBIOTIC [Concomitant]
     Active Substance: PROBIOTICS NOS
  6. FIBER [Concomitant]
     Active Substance: PSYLLIUM HUSK
  7. LOPRESOR [Concomitant]
     Active Substance: METOPROLOL
  8. LOVENOX [Concomitant]
     Active Substance: ENOXAPARIN SODIUM

REACTIONS (1)
  - Cerebrovascular accident [None]
